FAERS Safety Report 7726760-X (Version None)
Quarter: 2011Q3

REPORT INFORMATION
  Report Type: 
  Country: None (occurrence: None)
  Receive Date: 20110902
  Receipt Date: 20110824
  Transmission Date: 20111222
  Serious: Yes (Hospitalization)
  Sender: FDA-Public Use
  Company Number: US-GLAXOSMITHKLINE-A0811030A

PATIENT
  Age: 57 Year
  Sex: Male

DRUGS (4)
  1. GLUCOVANCE [Concomitant]
  2. AVANDIA [Suspect]
     Indication: TYPE 2 DIABETES MELLITUS
     Dosage: 8MG PER DAY
     Route: 048
     Dates: start: 20050101, end: 20090101
  3. ATENOLOL [Concomitant]
  4. VYTORIN [Concomitant]

REACTIONS (5)
  - MYOCARDIAL INFARCTION [None]
  - CARDIAC FAILURE CONGESTIVE [None]
  - CORONARY ARTERY DISEASE [None]
  - CARDIAC DISORDER [None]
  - ARRHYTHMIA [None]
